FAERS Safety Report 9960980 (Version 1)
Quarter: 2014Q1

REPORT INFORMATION
  Report Type: Report from Study
  Country: US (occurrence: US)
  Receive Date: 20140305
  Receipt Date: 20140305
  Transmission Date: 20141002
  Serious: No
  Sender: FDA-Public Use
  Company Number: US-ABBVIE-13P-163-1109782-00

PATIENT
  Age: 55 Year
  Sex: Female

DRUGS (9)
  1. HUMIRA [Suspect]
     Indication: CROHN^S DISEASE
     Dates: start: 20130403
  2. MYCOPHENOLATE [Concomitant]
     Indication: IMMUNOSUPPRESSION
     Dosage: 250 4 PILLS/DAY
  3. PROGRAF [Concomitant]
     Indication: IMMUNOSUPPRESSION
     Dosage: 1 MG PILL EACH AM AND PM
  4. ATENOLOL [Concomitant]
     Indication: HYPERTENSION
     Dosage: 50 MG DAILY
  5. METOPROLOL [Concomitant]
     Indication: HYPERTENSION
     Dosage: 50 MG TWICE DAILY
  6. SERTRALINE [Concomitant]
     Indication: DEPRESSION
     Dosage: 50 MG 3 PILLS IN AM
  7. LEVOTHYROXINE [Concomitant]
     Indication: THYROID DISORDER
     Dosage: 15 MG DAILY
  8. PREDNISONE (TAPER) [Concomitant]
     Indication: PRODUCT USED FOR UNKNOWN INDICATION
     Dosage: 5 MG DAILY 6 TIMES A WEEKS
  9. EXCEDRIN MIGRAINE [Concomitant]
     Indication: HEADACHE
     Dosage: 4-6 PILLS AS NEEDED

REACTIONS (6)
  - Nausea [Recovering/Resolving]
  - Decreased appetite [Recovering/Resolving]
  - Vomiting [Recovering/Resolving]
  - Diarrhoea [Not Recovered/Not Resolved]
  - Memory impairment [Recovering/Resolving]
  - Stress [Recovering/Resolving]
